FAERS Safety Report 8677307 (Version 2)
Quarter: 2013Q2

REPORT INFORMATION
  Report Type: Spontaneous
  Country: DE (occurrence: DE)
  Receive Date: 20120723
  Receipt Date: 20130408
  Transmission Date: 20140414
  Serious: Yes (Death)
  Sender: FDA-Public Use
  Company Number: DE-JNJFOC-20120708399

PATIENT
  Age: 52 Year
  Sex: Female

DRUGS (12)
  1. IBUPROFEN [Suspect]
     Indication: PRODUCT USED FOR UNKNOWN INDICATION
     Route: 065
  2. OLANZAPINE [Suspect]
     Indication: PRODUCT USED FOR UNKNOWN INDICATION
     Route: 065
  3. METOPROLOL [Suspect]
     Indication: PRODUCT USED FOR UNKNOWN INDICATION
     Route: 065
  4. TILIDINE [Suspect]
     Indication: PRODUCT USED FOR UNKNOWN INDICATION
     Route: 065
  5. AMLODIPINE BESILATE [Interacting]
     Indication: PRODUCT USED FOR UNKNOWN INDICATION
     Route: 065
  6. AMLODIPINE BESILATE [Interacting]
     Indication: PRODUCT USED FOR UNKNOWN INDICATION
     Route: 065
  7. AMLODIPINE BESILATE [Interacting]
     Indication: PRODUCT USED FOR UNKNOWN INDICATION
     Route: 065
  8. DOXEPIN [Interacting]
     Indication: MENTAL DISORDER
     Route: 065
  9. DOXEPIN [Interacting]
     Indication: MENTAL DISORDER
     Route: 065
  10. DOXEPIN [Interacting]
     Indication: MENTAL DISORDER
     Route: 065
  11. PROTHIPENDYL [Interacting]
     Indication: PRODUCT USED FOR UNKNOWN INDICATION
     Dosage: DOUBLE DOSAGE AT NIGHT
     Route: 065
  12. DIAZEPAM [Interacting]
     Indication: PRODUCT USED FOR UNKNOWN INDICATION
     Route: 065

REACTIONS (8)
  - Drug interaction [Fatal]
  - Toxicity to various agents [Fatal]
  - Drooling [Unknown]
  - Pain [Unknown]
  - Insomnia [Unknown]
  - Gait disturbance [Unknown]
  - Lethargy [Unknown]
  - Somnolence [None]
